FAERS Safety Report 4335938-7 (Version None)
Quarter: 2004Q1

REPORT INFORMATION
  Report Type: 
  Country: None (occurrence: None)
  Receive Date: 20040329
  Receipt Date: 20031120
  Transmission Date: 20041129
  Serious: No
  Sender: FDA-Public Use
  Company Number: USA031153174

PATIENT
  Age: 16 Year
  Sex: Male
  Weight: 100 kg

DRUGS (1)
  1. STRATTERA [Suspect]
     Dosage: 80 MG/DAY
     Dates: start: 20030801, end: 20031120

REACTIONS (6)
  - ABDOMINAL PAIN UPPER [None]
  - DECREASED APPETITE [None]
  - FATIGUE [None]
  - HEADACHE [None]
  - HYPERSOMNIA [None]
  - PALLOR [None]
